FAERS Safety Report 15052999 (Version 1)
Quarter: 2018Q2

REPORT INFORMATION
  Report Type: Spontaneous
  Country: GB (occurrence: NL)
  Receive Date: 20180622
  Receipt Date: 20180622
  Transmission Date: 20180711
  Serious: Yes (Hospitalization)
  Sender: FDA-Public Use
  Company Number: NL-FRESENIUS KABI-FK201807067

PATIENT
  Age: 61 Year
  Sex: Female

DRUGS (3)
  1. OXALIPLATIN (MANUFACTURER UNKNOWN) [Suspect]
     Active Substance: OXALIPLATIN
     Indication: RECTAL CANCER
     Dosage: DATE OF MOST RECENT DOSE PRIOR TO SAE: 02/MAR/2016
     Route: 065
     Dates: start: 20151112
  2. CAPECITABINE. [Suspect]
     Active Substance: CAPECITABINE
     Indication: RECTAL CANCER
     Dosage: DATE OF MOST RECENT DOSE PRIOR TO SAE: 15/MAR/2016
     Route: 065
     Dates: start: 20151112
  3. BEVACIZUMAB. [Suspect]
     Active Substance: BEVACIZUMAB
     Indication: RECTAL CANCER
     Dosage: DATE OF MOST RECENT DOSE PRIOR TO SAE: 03/DEC/2015
     Route: 065
     Dates: start: 20151112

REACTIONS (2)
  - Pyrexia [Recovering/Resolving]
  - Urosepsis [Recovering/Resolving]

NARRATIVE: CASE EVENT DATE: 20160318
